FAERS Safety Report 21949568 (Version 2)
Quarter: 2023Q1

REPORT INFORMATION
  Report Type: Spontaneous
  Country: US (occurrence: US)
  Receive Date: 20230203
  Receipt Date: 20230221
  Transmission Date: 20230418
  Serious: Yes (Other)
  Sender: FDA-Public Use
  Company Number: US-MSNLABS-2023MSNSPO00136

PATIENT

DRUGS (3)
  1. CAPECITABINE [Suspect]
     Active Substance: CAPECITABINE
     Indication: Neoplasm malignant
     Dosage: 03 TABLETS BY MOUTH AFTER MEAL WITH GLASS OF WATER
     Route: 048
     Dates: start: 20221027, end: 20230119
  2. CAPECITABINE [Suspect]
     Active Substance: CAPECITABINE
     Dosage: 03 TABLETS BY MOUTH AFTER MEAL WITH GLASS OF WATER
     Route: 048
     Dates: start: 20221027, end: 20230119
  3. OXYCODONE [Concomitant]
     Active Substance: OXYCODONE
     Indication: Product used for unknown indication
     Route: 065

REACTIONS (5)
  - Acute kidney injury [Unknown]
  - Toxicity to various agents [Unknown]
  - Urine oxalate [Unknown]
  - Dehydration [Unknown]
  - Fatigue [Unknown]

NARRATIVE: CASE EVENT DATE: 20221230
